FAERS Safety Report 10339425 (Version 1)
Quarter: 2014Q3

REPORT INFORMATION
  Report Type: Spontaneous
  Country: US (occurrence: US)
  Receive Date: 20140724
  Receipt Date: 20140724
  Transmission Date: 20150326
  Serious: No
  Sender: FDA-Public Use
  Company Number: US-BAYER-2014-110936

PATIENT
  Age: 80 Year
  Sex: Female
  Weight: 70 kg

DRUGS (2)
  1. SERTRALINE [Concomitant]
     Active Substance: SERTRALINE HYDROCHLORIDE
  2. ALEVE [Suspect]
     Active Substance: NAPROXEN SODIUM
     Indication: ARTHRITIS
     Dosage: 1 DF, PRN
     Route: 048
     Dates: start: 2014, end: 201407

REACTIONS (1)
  - Insomnia [Recovered/Resolved]

NARRATIVE: CASE EVENT DATE: 2014
